FAERS Safety Report 25805575 (Version 1)
Quarter: 2025Q3

REPORT INFORMATION
  Report Type: Spontaneous
  Country: US (occurrence: US)
  Receive Date: 20250916
  Receipt Date: 20250916
  Transmission Date: 20251021
  Serious: No
  Sender: SANDOZ
  Company Number: US-SANDOZ-SDZ2025US066298

PATIENT
  Age: 50 Year
  Sex: Female
  Weight: 65.76 kg

DRUGS (1)
  1. ESTRADIOL [Suspect]
     Active Substance: ESTRADIOL
     Indication: Product used for unknown indication
     Dosage: 0.05 MG, TWICE A WEEK
     Route: 003
     Dates: start: 20210204

REACTIONS (4)
  - Wrong technique in product usage process [Unknown]
  - Product adhesion issue [Unknown]
  - Product use complaint [Unknown]
  - Circumstance or information capable of leading to medication error [Unknown]

NARRATIVE: CASE EVENT DATE: 20250505
